FAERS Safety Report 24221439 (Version 1)
Quarter: 2024Q3

REPORT INFORMATION
  Report Type: Spontaneous
  Country: DE (occurrence: DE)
  Receive Date: 20240819
  Receipt Date: 20240819
  Transmission Date: 20241017
  Serious: Yes (Hospitalization, Other)
  Sender: Vantive US Healthcare
  Company Number: DE-VANTIVE-2024VAN018694

PATIENT
  Sex: Male
  Weight: 73 kg

DRUGS (4)
  1. CALCIUM CL\DEXTROSE\MAGNESIUM CL\SODIUM BICAR\SODIUM CL\SODIUM LACT [Suspect]
     Active Substance: CALCIUM CHLORIDE\DEXTROSE MONOHYDRATE\MAGNESIUM CHLORIDE\SODIUM BICARBONATE\SODIUM CHLORIDE\SODIUM L
     Dosage: 5 L/ DAY
     Route: 033
  2. CALCIUM CL\DEXTROSE\MAGNESIUM CL\SODIUM BICAR\SODIUM CL\SODIUM LACT [Suspect]
     Active Substance: CALCIUM CHLORIDE\DEXTROSE MONOHYDRATE\MAGNESIUM CHLORIDE\SODIUM BICARBONATE\SODIUM CHLORIDE\SODIUM L
     Dosage: 5 L/ DAY
     Route: 033
  3. NUTRINEAL PD4 [Suspect]
     Active Substance: AMINO ACIDS\CALCIUM CHLORIDE\MAGNESIUM CHLORIDE\SODIUM CHLORIDE\SODIUM LACTATE
     Dosage: 2.5 L/DAY
     Route: 033
  4. EXTRANEAL [Suspect]
     Active Substance: CALCIUM CHLORIDE\ICODEXTRIN\MAGNESIUM CHLORIDE\SODIUM CHLORIDE\SODIUM LACTATE
     Dosage: 1.5L/ DAY
     Route: 033

REACTIONS (17)
  - Mechanical ileus [Recovered/Resolved]
  - Small intestinal obstruction [Unknown]
  - Encapsulating peritoneal sclerosis [Recovered/Resolved]
  - Peritonitis [Unknown]
  - General physical health deterioration [Unknown]
  - Jaundice [Unknown]
  - Surgery [Unknown]
  - Peritoneal disorder [Unknown]
  - Abdominal rigidity [Unknown]
  - Weight decreased [Unknown]
  - Vomiting [Recovered/Resolved]
  - Vomiting [Unknown]
  - Abdominal discomfort [Unknown]
  - Chills [Recovered/Resolved]
  - Device malfunction [Unknown]
  - Abdominal pain [Unknown]
  - Nausea [Recovered/Resolved]
